FAERS Safety Report 16179771 (Version 2)
Quarter: 2019Q2

REPORT INFORMATION
  Report Type: Spontaneous
  Country: US (occurrence: US)
  Receive Date: 20190410
  Receipt Date: 20190425
  Transmission Date: 20190711
  Serious: Yes (Hospitalization)
  Sender: FDA-Public Use
  Company Number: US-VERTEX PHARMACEUTICALS-2019-003060

PATIENT
  Age: 15 Year
  Sex: Female

DRUGS (15)
  1. HUMALOG [Concomitant]
     Active Substance: INSULIN LISPRO
  2. CAYSTON [Concomitant]
     Active Substance: AZTREONAM
  3. CETRIZINE [Concomitant]
     Active Substance: CETIRIZINE HYDROCHLORIDE
  4. CIPROFLOXACIN. [Concomitant]
     Active Substance: CIPROFLOXACIN
     Indication: PNEUMONIA
  5. ALTRA [Concomitant]
  6. PROVENTIL [Concomitant]
     Active Substance: ALBUTEROL
  7. ORKAMBI [Suspect]
     Active Substance: IVACAFTOR\LUMACAFTOR
     Indication: CYSTIC FIBROSIS
     Dosage: 400/250 MG, BID
     Route: 048
     Dates: start: 20170620
  8. RANITIDINE. [Concomitant]
     Active Substance: RANITIDINE
  9. LANTUS [Concomitant]
     Active Substance: INSULIN GLARGINE
  10. URSODIOL. [Concomitant]
     Active Substance: URSODIOL
  11. AMOXICILLIN. [Concomitant]
     Active Substance: AMOXICILLIN
  12. ADEK [Concomitant]
  13. MELATONIN [Concomitant]
     Active Substance: MELATONIN
  14. FISH OIL [Concomitant]
     Active Substance: FISH OIL
  15. SODIUM CHLORIDE. [Concomitant]
     Active Substance: SODIUM CHLORIDE

REACTIONS (4)
  - Eye discharge [Unknown]
  - Ear pain [Unknown]
  - Pneumonia [Unknown]
  - Rhinorrhoea [Unknown]

NARRATIVE: CASE EVENT DATE: 20190402
